FAERS Safety Report 24918614 (Version 1)
Quarter: 2025Q1

REPORT INFORMATION
  Report Type: Spontaneous
  Country: AU (occurrence: AU)
  Receive Date: 20250203
  Receipt Date: 20250203
  Transmission Date: 20250409
  Serious: Yes (Other)
  Sender: JAZZ
  Company Number: AU-JAZZ PHARMACEUTICALS-2025-AU-002747

PATIENT
  Sex: Male

DRUGS (1)
  1. DEFITELIO [Suspect]
     Active Substance: DEFIBROTIDE SODIUM
     Indication: Product used for unknown indication

REACTIONS (4)
  - Cystitis haemorrhagic [Unknown]
  - Enterococcal infection [Unknown]
  - Febrile neutropenia [Unknown]
  - Pneumonia [Unknown]
